FAERS Safety Report 15289907 (Version 5)
Quarter: 2019Q2

REPORT INFORMATION
  Report Type: Spontaneous
  Country: US (occurrence: US)
  Receive Date: 20180817
  Receipt Date: 20190530
  Transmission Date: 20190711
  Serious: Yes (Other)
  Sender: FDA-Public Use
  Company Number: US-PFIZER INC-2018327490

PATIENT
  Age: 52 Year
  Sex: Female
  Weight: 64 kg

DRUGS (5)
  1. ADVIL LIQUI-GELS [Suspect]
     Active Substance: IBUPROFEN
     Indication: PAIN
     Dosage: 400 MG, SINGLE,  (200MG-2 CAPSULES) (400 MG 1X)
     Route: 048
     Dates: start: 20180811, end: 20180811
  2. MULTIVITAMIN [VITAMINS NOS] [Concomitant]
     Dosage: UNK
  3. LANTUS [Concomitant]
     Active Substance: INSULIN GLARGINE
     Indication: TYPE 1 DIABETES MELLITUS
     Dosage: 20 IU, 1X/DAY [20UNITS SUBCUTANEOUS INJECTION ADMINISTERED IN THE EVENING BEFORE BED DAILY]
     Route: 058
  4. NOVOLOG [Concomitant]
     Active Substance: INSULIN ASPART
     Indication: TYPE 1 DIABETES MELLITUS
     Dosage: UNK [DEPENDS ON MY BLOOD SUGAR,SLIDING SCALE SUBCUTANEOUS INJECTION WITH MEALS AND AS NEEDED]
     Route: 058
  5. ALLEGRA [Concomitant]
     Active Substance: FEXOFENADINE HYDROCHLORIDE
     Indication: HYPERSENSITIVITY
     Dosage: UNK
     Dates: end: 201810

REACTIONS (6)
  - Cough [Recovered/Resolved]
  - Sinus congestion [Recovered/Resolved]
  - Reaction to excipient [Recovered/Resolved]
  - Pharyngeal oedema [Recovered/Resolved]
  - Dyspnoea [Recovered/Resolved]
  - Hypersensitivity [Recovered/Resolved]

NARRATIVE: CASE EVENT DATE: 20180811
